FAERS Safety Report 20991779 (Version 1)
Quarter: 2022Q2

REPORT INFORMATION
  Report Type: Spontaneous
  Country: ES (occurrence: ES)
  Receive Date: 20220622
  Receipt Date: 20220622
  Transmission Date: 20220721
  Serious: Yes (Other)
  Sender: FDA-Public Use
  Company Number: ES-STRIDES ARCOLAB LIMITED-2022SP007410

PATIENT

DRUGS (20)
  1. PREDNISOLONE [Suspect]
     Active Substance: PREDNISOLONE
     Indication: Acute lymphocytic leukaemia
     Dosage: INDUCTION IA PHASE
     Route: 048
  2. PREDNISOLONE [Suspect]
     Active Substance: PREDNISOLONE
     Dosage: INDUCTION IA PHASE, IV PUSH
     Route: 042
  3. PREDNISOLONE [Suspect]
     Active Substance: PREDNISOLONE
     Dosage: INDUCTION IA PHASE
     Route: 037
  4. PREDNISOLONE [Suspect]
     Active Substance: PREDNISOLONE
     Dosage: INDUCTION IB PHASE
     Route: 037
  5. PREDNISOLONE [Suspect]
     Active Substance: PREDNISOLONE
     Dosage: CONSOLIDATION PHASE
     Route: 037
  6. VINCRISTINE [Suspect]
     Active Substance: VINCRISTINE
     Indication: Acute lymphocytic leukaemia
     Dosage: INDUCTION IA PHASE, IV PUSH
     Route: 042
  7. DAUNORUBICIN [Suspect]
     Active Substance: DAUNORUBICIN
     Indication: Acute lymphocytic leukaemia
     Dosage: INDUCTION IA PHASE
     Route: 042
  8. ASPARAGINASE [Suspect]
     Active Substance: ASPARAGINASE
     Indication: Acute lymphocytic leukaemia
     Dosage: INDUCTION IA PHASE
     Route: 030
  9. METHOTREXATE [Suspect]
     Active Substance: METHOTREXATE
     Indication: Acute lymphocytic leukaemia
     Dosage: INDUCTION IA PHASE
     Route: 037
  10. METHOTREXATE [Suspect]
     Active Substance: METHOTREXATE
     Dosage: INDUCTION IB PHASE
     Route: 037
  11. METHOTREXATE [Suspect]
     Active Substance: METHOTREXATE
     Dosage: CONSOLIDATION PHASE
     Route: 037
  12. METHOTREXATE [Suspect]
     Active Substance: METHOTREXATE
     Dosage: CONSOLIDATION PHASE; OVER 24 HOURS
     Route: 042
  13. CYTARABINE [Suspect]
     Active Substance: CYTARABINE
     Indication: Acute lymphocytic leukaemia
     Dosage: INDUCTION IA PHASE
     Route: 037
  14. CYTARABINE [Suspect]
     Active Substance: CYTARABINE
     Dosage: INDUCTION IB PHASE
     Route: 037
  15. CYTARABINE [Suspect]
     Active Substance: CYTARABINE
     Dosage: CONSOLIDATION PHASE
     Route: 037
  16. CYTARABINE [Suspect]
     Active Substance: CYTARABINE
     Dosage: INDUCTION IB PHASE; OVER 1HOUR, INTRAVENOUS INFUSION
     Route: 042
  17. CYCLOPHOSPHAMIDE [Suspect]
     Active Substance: CYCLOPHOSPHAMIDE
     Indication: Acute lymphocytic leukaemia
     Dosage: INDUCTION IB PHASE; OVER 1HOUR
     Route: 042
  18. MERCAPTOPURINE [Suspect]
     Active Substance: MERCAPTOPURINE
     Indication: Acute lymphocytic leukaemia
     Dosage: INDUCTION IB PHASE
     Route: 048
  19. MERCAPTOPURINE [Suspect]
     Active Substance: MERCAPTOPURINE
     Dosage: CONSOLIDATION PHASE
     Route: 048
  20. LEUCOVORIN [Concomitant]
     Active Substance: LEUCOVORIN
     Indication: Prophylaxis
     Dosage: UNK
     Route: 065

REACTIONS (1)
  - Embolism venous [Unknown]
